FAERS Safety Report 12115491 (Version 2)
Quarter: 2016Q1

REPORT INFORMATION
  Report Type: Spontaneous
  Country: US (occurrence: US)
  Receive Date: 20160225
  Receipt Date: 20160310
  Transmission Date: 20160526
  Serious: Yes (Hospitalization, Other)
  Sender: FDA-Public Use
  Company Number: US-B.I. PHARMACEUTICALS,INC./RIDGEFIELD-2016-BI-10510BP

PATIENT
  Age: 69 Year
  Sex: Female
  Weight: 117 kg

DRUGS (9)
  1. ORENITRAM [Suspect]
     Active Substance: TREPROSTINIL
     Indication: PRODUCT USED FOR UNKNOWN INDICATION
     Dosage: 3 MG
     Route: 048
     Dates: start: 20151030, end: 20151214
  2. REMODULIN [Suspect]
     Active Substance: TREPROSTINIL
     Indication: PRODUCT USED FOR UNKNOWN INDICATION
     Dosage: DOSE PER APPLICATION AND DAILY DOSE: 0.006 UG/KG
     Route: 058
     Dates: start: 20141114, end: 20151214
  3. REVATIO [Suspect]
     Active Substance: SILDENAFIL CITRATE
     Indication: PRODUCT USED FOR UNKNOWN INDICATION
     Route: 065
     Dates: start: 20140118, end: 201408
  4. REMODULIN [Suspect]
     Active Substance: TREPROSTINIL
     Route: 042
  5. AMBRISENTAN [Suspect]
     Active Substance: AMBRISENTAN
     Indication: PULMONARY ARTERIAL HYPERTENSION
     Dosage: 10 MG
     Route: 065
     Dates: start: 20140730
  6. REMODULIN [Suspect]
     Active Substance: TREPROSTINIL
     Dosage: DOSE PER APPLICATION AND DAILY DOSE: 0.004 UG/KG
     Route: 058
  7. PRADAXA [Suspect]
     Active Substance: DABIGATRAN ETEXILATE MESYLATE
     Indication: PRODUCT USED FOR UNKNOWN INDICATION
     Dosage: DOSE PER APPLICATION: 75
     Route: 065
  8. ORENITRAM [Suspect]
     Active Substance: TREPROSTINIL
     Dosage: 9 MG
     Route: 048
  9. ORENITRAM [Suspect]
     Active Substance: TREPROSTINIL
     Route: 065

REACTIONS (11)
  - Diarrhoea [Recovered/Resolved with Sequelae]
  - Infusion site pain [Unknown]
  - Oedema [Unknown]
  - Skin ulcer [Not Recovered/Not Resolved]
  - Pulmonary arterial hypertension [Unknown]
  - Right ventricular failure [Not Recovered/Not Resolved]
  - Skin infection [Unknown]
  - Oedema peripheral [Not Recovered/Not Resolved]
  - Injection site abscess [Recovered/Resolved]
  - Abdominal discomfort [Not Recovered/Not Resolved]
  - Fatigue [Unknown]

NARRATIVE: CASE EVENT DATE: 201501
